FAERS Safety Report 10203280 (Version 1)
Quarter: 2014Q2

REPORT INFORMATION
  Report Type: Spontaneous
  Country: PT (occurrence: PT)
  Receive Date: 20140529
  Receipt Date: 20140529
  Transmission Date: 20141212
  Serious: Yes (Disabling)
  Sender: FDA-Public Use
  Company Number: PT-BRISTOL-MYERS SQUIBB COMPANY-20803011

PATIENT
  Age: 72 Year
  Sex: Female
  Weight: 92 kg

DRUGS (5)
  1. ONGLYZA TABS 5 MG [Suspect]
     Indication: TYPE 2 DIABETES MELLITUS
     Route: 048
     Dates: start: 201402, end: 20140325
  2. EUTIROX [Concomitant]
     Indication: HYPERTHYROIDISM
     Dosage: TABLET
     Route: 048
  3. PANTOPRAZOLE [Concomitant]
     Indication: PROPHYLAXIS
     Dosage: GASTRORESISTANT TABLET
     Route: 048
  4. DIAMICRON [Concomitant]
     Indication: TYPE 2 DIABETES MELLITUS
     Dosage: DIAMICRON LM.?MODIFIED RELEASE TABLET
     Route: 048
     Dates: start: 201310
  5. PERINDOPRIL ARGININE + AMLODIPINE BESILATE [Concomitant]
     Indication: HYPERTENSION
     Dosage: 10 + 10 MG, TABLETS?COVERAM
     Route: 048
     Dates: start: 201402

REACTIONS (3)
  - Abdominal pain upper [Recovered/Resolved]
  - Dyspepsia [Recovered/Resolved]
  - Food intolerance [Recovered/Resolved]
